FAERS Safety Report 5196097-4 (Version None)
Quarter: 2007Q1

REPORT INFORMATION
  Report Type: 
  Country: None (occurrence: None)
  Receive Date: 20070102
  Receipt Date: 20061219
  Transmission Date: 20070707
  Serious: Yes (Hospitalization)
  Sender: FDA-Public Use
  Company Number: US-ROCHE-456002

PATIENT
  Age: 45 Year
  Sex: Female
  Weight: 140.6 kg

DRUGS (16)
  1. PEGASYS [Suspect]
     Route: 058
     Dates: start: 20041215, end: 20050613
  2. PEGASYS [Suspect]
     Route: 058
     Dates: start: 20051127, end: 20060625
  3. PEGASYS [Suspect]
     Dosage: STRENGTH AND FORMULATION: 180MCG/0.5CC
     Route: 058
     Dates: start: 20060821
  4. COPEGUS [Suspect]
     Route: 048
     Dates: start: 20041215, end: 20050613
  5. COPEGUS [Suspect]
     Route: 048
     Dates: start: 20051127, end: 20060625
  6. COPEGUS [Suspect]
     Dosage: STRENGTH AND FORMULATION: 200 MG
     Route: 048
     Dates: start: 20060821
  7. MILK THISTLE [Concomitant]
     Route: 048
  8. LOTREL [Concomitant]
     Dosage: DOSAGE REGIMEN REPORTED AS DAILY.
     Route: 048
  9. ELAVIL [Concomitant]
     Dosage: DOSAGE REGIMEN REPORTED AS 25 MG AT BEDTIME.
     Route: 048
  10. XANAX [Concomitant]
     Dosage: DOSAGFE REGIMEN: AS NEEDED.
     Route: 048
  11. LORCET-HD [Concomitant]
     Dosage: DOSAGE REGIMEN REPORTED: AS NEEDED.
     Route: 048
  12. IBUPROFEN [Concomitant]
     Dosage: DOSAGE REGIMEN: AS NEEDED.
     Route: 048
  13. MVI-12 (UNIT VIAL) [Concomitant]
     Dosage: MEDICATION REPORTED AS MULTIPLE VITAMIN. DOSAGE REGIMEN: DAILY.
     Route: 048
  14. FISH OIL [Concomitant]
     Dosage: MEDICATION REPORTED AS NORWEGIAN FISH OIL.
     Route: 048
  15. UNSPECIFIED DRUG [Concomitant]
     Dosage: MEDICATION REPORTED AS CINNAMIN OIL.
     Route: 048
  16. PROZAC [Concomitant]
     Route: 048

REACTIONS (20)
  - ABDOMINAL PAIN [None]
  - ADNEXA UTERI MASS [None]
  - ASTHENIA [None]
  - BLOOD GLUCOSE INCREASED [None]
  - CHEST PAIN [None]
  - COLONIC POLYP [None]
  - DEHYDRATION [None]
  - DEPRESSION [None]
  - DIARRHOEA [None]
  - DYSPEPSIA [None]
  - FATIGUE [None]
  - FEELING ABNORMAL [None]
  - GASTRITIS [None]
  - INSOMNIA [None]
  - LOSS OF CONSCIOUSNESS [None]
  - MUSCLE SPASMS [None]
  - NAUSEA [None]
  - PALPITATIONS [None]
  - PRURITUS [None]
  - RENAL FAILURE [None]
